FAERS Safety Report 7470582-4 (Version None)
Quarter: 2011Q2

REPORT INFORMATION
  Report Type: 
  Country: None (occurrence: None)
  Receive Date: 20110510
  Receipt Date: 20110328
  Transmission Date: 20111010
  Serious: Yes (Hospitalization, Other)
  Sender: FDA-Public Use
  Company Number: US-BAYER-201034584NA

PATIENT
  Age: 26 Year
  Sex: Female
  Weight: 115.65 kg

DRUGS (13)
  1. INSULIN [INSULIN] [Concomitant]
     Indication: DIABETES MELLITUS
     Dosage: UNK
     Dates: start: 20070101
  2. IRON [IRON] [Concomitant]
  3. VITAMIN B COMPLEX COX [Concomitant]
  4. LEVAQUIN [Concomitant]
     Indication: COUGH
     Dosage: UNK
     Dates: start: 20080218
  5. METOPROLOL SUCCINATE [Concomitant]
     Indication: DIABETES MELLITUS
     Dosage: UNK
     Dates: start: 20010101
  6. ZITHROMAX [Concomitant]
     Indication: EAR INFECTION
     Dosage: 500 MG, QD
  7. LISINOPRIL [Concomitant]
     Indication: HYPERTENSION
     Dosage: UNK
     Dates: start: 20070101
  8. LEVAQUIN [Concomitant]
     Indication: EAR PAIN
  9. IBUPROFEN [Concomitant]
     Dosage: UNK
     Dates: start: 20080218
  10. ZOCOR [Concomitant]
     Indication: BLOOD CHOLESTEROL INCREASED
     Dosage: UNK
     Dates: start: 20070101
  11. YAZ [Suspect]
     Indication: PRODUCT USED FOR UNKNOWN INDICATION
     Route: 048
     Dates: start: 20061201, end: 20070201
  12. DILANTIN [Concomitant]
     Dosage: UNK
     Dates: start: 20070101
  13. METFORMIN HCL [Concomitant]
     Indication: DIABETES MELLITUS
     Dosage: UNK
     Dates: start: 20010101

REACTIONS (2)
  - INTRACRANIAL ANEURYSM [None]
  - CEREBROVASCULAR ACCIDENT [None]
